FAERS Safety Report 9685451 (Version 3)
Quarter: 2013Q4

REPORT INFORMATION
  Report Type: Spontaneous
  Country: BR (occurrence: BR)
  Receive Date: 20131113
  Receipt Date: 20131226
  Transmission Date: 20140711
  Serious: Yes (Death, Hospitalization, Other)
  Sender: FDA-Public Use
  Company Number: BR-PFIZER INC-2013193728

PATIENT
  Age: 61 Year
  Sex: Male
  Weight: 47 kg

DRUGS (3)
  1. SUTENT [Suspect]
     Indication: RENAL CANCER
     Dosage: 50 MG (1 TABLET), 1X/DAY
     Route: 048
     Dates: start: 201304
  2. SUTENT [Suspect]
     Indication: NEOPLASM MALIGNANT
  3. TRAMAL [Concomitant]
     Indication: PAIN
     Dosage: UNK

REACTIONS (12)
  - Lung disorder [Fatal]
  - Cachexia [Fatal]
  - Asthenia [Fatal]
  - Renal failure [Unknown]
  - Infection [Unknown]
  - Urinary tract infection [Recovered/Resolved]
  - Haematuria [Unknown]
  - Feeding disorder [Unknown]
  - Decreased appetite [Unknown]
  - Dysgeusia [Unknown]
  - Dyspnoea [Unknown]
  - Weight decreased [Unknown]
